FAERS Safety Report 24718229 (Version 1)
Quarter: 2024Q4

REPORT INFORMATION
  Report Type: Spontaneous
  Country: CA (occurrence: CA)
  Receive Date: 20241210
  Receipt Date: 20241210
  Transmission Date: 20250115
  Serious: Yes (Hospitalization, Other)
  Sender: B BRAUN
  Company Number: CA-B.Braun Medical Inc.-2166853

PATIENT
  Age: 89 Year
  Sex: Female

DRUGS (37)
  1. ACETAMINOPHEN [Suspect]
     Active Substance: ACETAMINOPHEN
  2. ATORVASTATIN CALCIUM [Suspect]
     Active Substance: ATORVASTATIN CALCIUM
  3. COSMETICS [Suspect]
     Active Substance: COSMETICS
  4. ASCORBIC ACID\POLYETHYLENE GLYCOL 4000\POTASSIUM CL\SOD ASCORBATE\SOD [Suspect]
     Active Substance: ASCORBIC ACID\POLYETHYLENE GLYCOL 4000\POTASSIUM CL\SOD ASCORBATE\SOD CL\SOD SULFATE
  5. XARELTO [Suspect]
     Active Substance: RIVAROXABAN
  6. TRAZODONE [Suspect]
     Active Substance: TRAZODONE HYDROCHLORIDE
  7. TIOTROPIUM BROMIDE [Suspect]
     Active Substance: TIOTROPIUM BROMIDE
  8. SYMBICORT [Suspect]
     Active Substance: BUDESONIDE\FORMOTEROL FUMARATE DIHYDRATE
  9. SPIRIVA [Suspect]
     Active Substance: TIOTROPIUM BROMIDE MONOHYDRATE
  10. SINGULAIR [Suspect]
     Active Substance: MONTELUKAST SODIUM
  11. SERTRALINE [Suspect]
     Active Substance: SERTRALINE HYDROCHLORIDE
  12. SENNOSIDES [Suspect]
     Active Substance: SENNOSIDES
  13. ALBUTEROL [Suspect]
     Active Substance: ALBUTEROL
  14. RIVAROXABAN [Suspect]
     Active Substance: RIVAROXABAN
  15. PROPYLENE GLYCOL [Suspect]
     Active Substance: PROPYLENE GLYCOL
  16. PREDNISONE [Suspect]
     Active Substance: PREDNISONE
  17. POLYETHYLENE GLYCOL [Suspect]
     Active Substance: POLYETHYLENE GLYCOL
  18. PANTOPRAZOLE SODIUM ANHYDROUS [Suspect]
     Active Substance: PANTOPRAZOLE SODIUM ANHYDROUS
  19. PANTOPRAZOLE [Suspect]
     Active Substance: PANTOPRAZOLE
  20. NITROFURANTOIN [Suspect]
     Active Substance: NITROFURANTOIN
  21. MOVIPREP [Suspect]
     Active Substance: ASCORBIC ACID\POLYETHYLENE GLYCOL 3350\POTASSIUM CHLORIDE\SODIUM ASCORBATE\SODIUM CHLORIDE\SODIUM SU
  22. MONTELUKAST SODIUM [Suspect]
     Active Substance: MONTELUKAST\MONTELUKAST SODIUM
  23. MINERAL OIL [Suspect]
     Active Substance: MINERAL OIL
  24. ELECTROLYTES NOS\POLYETHYLENE GLYCOL 3350 [Suspect]
     Active Substance: ELECTROLYTES NOS\POLYETHYLENE GLYCOL 3350
  25. MACROBID [Suspect]
     Active Substance: NITROFURANTOIN\NITROFURANTOIN MONOHYDRATE
  26. FLEET MINERAL OIL [Suspect]
     Active Substance: MINERAL OIL
  27. ELECTROLYTES NOS\POLYETHYLENE GLYCOLS [Suspect]
     Active Substance: ELECTROLYTES NOS\POLYETHYLENE GLYCOLS
  28. DOCUSATE SODIUM [Suspect]
     Active Substance: DOCUSATE SODIUM
  29. DESYREL [Suspect]
     Active Substance: TRAZODONE HYDROCHLORIDE
  30. CYANOCOBALAMIN [Suspect]
     Active Substance: CYANOCOBALAMIN
  31. CHOLECALCIFEROL [Suspect]
     Active Substance: CHOLECALCIFEROL
  32. CHLORTHALIDONE [Suspect]
     Active Substance: CHLORTHALIDONE
  33. CASCARA SAGRADA [Suspect]
     Active Substance: FRANGULA PURSHIANA BARK
  34. CALCIUM CARBONATE\CHOLECALCIFEROL [Suspect]
     Active Substance: CALCIUM CARBONATE\CHOLECALCIFEROL
  35. BUDESONIDE\FORMOTEROL FUMARATE [Suspect]
     Active Substance: BUDESONIDE\FORMOTEROL FUMARATE
  36. BUDESONIDE [Suspect]
     Active Substance: BUDESONIDE
  37. ATROVENT [Suspect]
     Active Substance: IPRATROPIUM BROMIDE

REACTIONS (20)
  - Asthma [Unknown]
  - Wheezing [Unknown]
  - Vomiting [Unknown]
  - Upper respiratory tract infection [Unknown]
  - Therapeutic product effect incomplete [Unknown]
  - Pyrexia [Unknown]
  - Pulmonary embolism [Unknown]
  - Productive cough [Unknown]
  - Presyncope [Unknown]
  - Pneumonia viral [Unknown]
  - Oedema peripheral [Unknown]
  - Nausea [Unknown]
  - Nasal congestion [Unknown]
  - Lower respiratory tract infection [Unknown]
  - Eosinophilia [Unknown]
  - Dyspnoea [Unknown]
  - Drug ineffective [Unknown]
  - Chronic obstructive pulmonary disease [Unknown]
  - Cardiac murmur [Unknown]
  - Breath sounds abnormal [Unknown]
